FAERS Safety Report 8184783-3 (Version None)
Quarter: 2012Q1

REPORT INFORMATION
  Report Type: 
  Country: None (occurrence: None)
  Receive Date: 20120305
  Receipt Date: 20120305
  Transmission Date: 20120608
  Serious: Yes (Other)
  Sender: FDA-Public Use
  Company Number: None

PATIENT
  Age: 18 Year
  Sex: Male
  Weight: 58.967 kg

DRUGS (4)
  1. PAXIL [Suspect]
     Indication: ANXIETY
     Dosage: 35MG
     Route: 048
  2. PAXIL [Suspect]
     Indication: DEPRESSION
     Dosage: 35MG
     Route: 048
  3. SEROQUEL [Concomitant]
     Indication: DEPRESSION
     Dosage: 100MG
     Route: 048
  4. SEROQUEL [Concomitant]
     Indication: ANXIETY
     Dosage: 100MG
     Route: 048

REACTIONS (5)
  - SEXUAL DYSFUNCTION [None]
  - SOMNOLENCE [None]
  - MANIA [None]
  - FEELING ABNORMAL [None]
  - SUICIDAL IDEATION [None]
